FAERS Safety Report 11614906 (Version 3)
Quarter: 2016Q3

REPORT INFORMATION
  Report Type: Spontaneous
  Country: US (occurrence: US)
  Receive Date: 20151009
  Receipt Date: 20160909
  Transmission Date: 20161109
  Serious: Yes (Hospitalization)
  Sender: FDA-Public Use
  Company Number: US-TEVA-598180USA

PATIENT
  Age: 44 Year
  Sex: Female
  Weight: 90.8 kg

DRUGS (3)
  1. EPOPROSTENOL SODIUM. [Suspect]
     Active Substance: EPOPROSTENOL SODIUM
     Dosage: 20 NG/KG/MIN
     Route: 042
     Dates: start: 20150827
  2. EPOPROSTENOL SODIUM. [Suspect]
     Active Substance: EPOPROSTENOL SODIUM
     Indication: PULMONARY ARTERIAL HYPERTENSION
     Dosage: 7 NG/KG/MIN
     Route: 042
     Dates: start: 20150827
  3. EPOPROSTENOL SODIUM. [Suspect]
     Active Substance: EPOPROSTENOL SODIUM
     Dosage: 30 NG/KG/MIN
     Route: 042
     Dates: start: 20150827

REACTIONS (11)
  - Pain in jaw [Unknown]
  - Activities of daily living impaired [Unknown]
  - Blister [Unknown]
  - Catheter site inflammation [Unknown]
  - Hypotension [Unknown]
  - Nausea [Unknown]
  - Eye pain [Unknown]
  - Complication associated with device [Unknown]
  - Asthenia [Unknown]
  - Rash [Unknown]
  - Constipation [Unknown]

NARRATIVE: CASE EVENT DATE: 20160820
